FAERS Safety Report 6991014 (Version 3)
Quarter: 2015Q1

REPORT INFORMATION
  Report Type: Report from Study
  Country: US (occurrence: US)
  Receive Date: 20090511
  Receipt Date: 20150319
  Transmission Date: 20150721
  Serious: Yes (Death, Hospitalization)
  Sender: FDA-Public Use
  Company Number: US-BIOGENIDEC-2009BI013144

PATIENT
  Sex: Male

DRUGS (2)
  1. AVONEX [Suspect]
     Active Substance: INTERFERON BETA-1A
     Indication: MULTIPLE SCLEROSIS
     Route: 030
     Dates: start: 2006
  2. AVONEX [Suspect]
     Active Substance: INTERFERON BETA-1A
     Indication: MULTIPLE SCLEROSIS
     Route: 030
     Dates: start: 20010308

REACTIONS (7)
  - Progressive multiple sclerosis [Unknown]
  - Loss of control of legs [Unknown]
  - Eating disorder [Unknown]
  - Decubitus ulcer [Recovered/Resolved]
  - Off label use [Unknown]
  - Mobility decreased [Unknown]
  - Dysphagia [Fatal]

NARRATIVE: CASE EVENT DATE: 2006
